FAERS Safety Report 20207350 (Version 1)
Quarter: 2021Q4

REPORT INFORMATION
  Report Type: Spontaneous
  Country: US (occurrence: US)
  Receive Date: 20211220
  Receipt Date: 20211220
  Transmission Date: 20220303
  Serious: Yes (Other)
  Sender: FDA-Public Use
  Company Number: US-NOVEN PHARMACEUTICALS, INC.-2021US002783

PATIENT
  Age: 66 Year
  Sex: Female

DRUGS (3)
  1. MINIVELLE [Suspect]
     Active Substance: ESTRADIOL
     Indication: Hormone replacement therapy
     Dosage: 0.0375MG, UNKNOWN
     Route: 062
     Dates: end: 202103
  2. MINIVELLE [Suspect]
     Active Substance: ESTRADIOL
     Dosage: 0.0375MG, UNKNOWN
     Route: 062
     Dates: end: 201906
  3. MINIVELLE [Suspect]
     Active Substance: ESTRADIOL
     Dosage: 0.075MG, UNKNOWN
     Route: 062

REACTIONS (2)
  - Breast cancer female [Not Recovered/Not Resolved]
  - Burning mouth syndrome [Not Recovered/Not Resolved]

NARRATIVE: CASE EVENT DATE: 20180101
